FAERS Safety Report 16837989 (Version 4)
Quarter: 2021Q3

REPORT INFORMATION
  Report Type: Spontaneous
  Country: US (occurrence: US)
  Receive Date: 20190923
  Receipt Date: 20210802
  Transmission Date: 20211014
  Serious: Yes (Hospitalization, Other)
  Sender: FDA-Public Use
  Company Number: US-GILEAD-2019-0429311

PATIENT
  Age: 37 Year
  Sex: Male
  Weight: 104.76 kg

DRUGS (45)
  1. ISENTRESS [Concomitant]
     Active Substance: RALTEGRAVIR POTASSIUM
  2. PREZISTA [Concomitant]
     Active Substance: DARUNAVIR ETHANOLATE
  3. BIAXIN [Concomitant]
     Active Substance: CLARITHROMYCIN
  4. INSULIN [Concomitant]
     Active Substance: INSULIN NOS
  5. VIRACEPT [Concomitant]
     Active Substance: NELFINAVIR MESYLATE
  6. SULAR [Concomitant]
     Active Substance: NISOLDIPINE
  7. ARANESP [Concomitant]
     Active Substance: DARBEPOETIN ALFA
  8. ALLOPURINOL. [Concomitant]
     Active Substance: ALLOPURINOL
  9. SODIUM BICARBONATE. [Concomitant]
     Active Substance: SODIUM BICARBONATE
  10. KALETRA [Concomitant]
     Active Substance: LOPINAVIR\RITONAVIR
  11. ZIAGEN [Concomitant]
     Active Substance: ABACAVIR SULFATE
  12. NIASPAN [Concomitant]
     Active Substance: NIACIN
  13. NEBUPENT [Concomitant]
     Active Substance: PENTAMIDINE ISETHIONATE
  14. ZETIA [Concomitant]
     Active Substance: EZETIMIBE
  15. COMBIVIR [Concomitant]
     Active Substance: LAMIVUDINE\ZIDOVUDINE
  16. FLONASE [MOMETASONE FUROATE] [Concomitant]
     Active Substance: MOMETASONE FUROATE
  17. ASPIRIN [ACETYLSALICYLIC ACID] [Concomitant]
     Active Substance: ASPIRIN
  18. METOPROLOL. [Concomitant]
     Active Substance: METOPROLOL
  19. PRAVACHOL [Concomitant]
     Active Substance: PRAVASTATIN SODIUM
  20. RITONAVIR. [Concomitant]
     Active Substance: RITONAVIR
  21. NORVIR [Concomitant]
     Active Substance: RITONAVIR
  22. TEMAZEPAM. [Concomitant]
     Active Substance: TEMAZEPAM
  23. CLARITIN ALLERGIC [Concomitant]
     Active Substance: OXYMETAZOLINE HYDROCHLORIDE
  24. LORATADINE. [Concomitant]
     Active Substance: LORATADINE
  25. VIREAD [Suspect]
     Active Substance: TENOFOVIR DISOPROXIL FUMARATE
     Indication: HIV INFECTION
     Dosage: UNK
     Route: 048
     Dates: start: 200111, end: 20060830
  26. RENAGEL [Concomitant]
     Active Substance: SEVELAMER HYDROCHLORIDE
  27. CALCIUM ACETATE. [Concomitant]
     Active Substance: CALCIUM ACETATE
  28. EPIVIR [Concomitant]
     Active Substance: LAMIVUDINE
  29. INTELENCE [Concomitant]
     Active Substance: ETRAVIRINE
  30. SUSTIVA [Concomitant]
     Active Substance: EFAVIRENZ
  31. TIVICAY [Concomitant]
     Active Substance: DOLUTEGRAVIR SODIUM
  32. AVANDIA [Concomitant]
     Active Substance: ROSIGLITAZONE MALEATE
  33. ACTOS [Concomitant]
     Active Substance: PIOGLITAZONE HYDROCHLORIDE
  34. GLUCOPHAGE [Concomitant]
     Active Substance: METFORMIN HYDROCHLORIDE
  35. LIPITOR [Concomitant]
     Active Substance: ATORVASTATIN CALCIUM
  36. BACTRIM [Concomitant]
     Active Substance: SULFAMETHOXAZOLE\TRIMETHOPRIM
  37. CALCIUM [Concomitant]
     Active Substance: CALCIUM
  38. IRON [Concomitant]
     Active Substance: IRON
  39. INVIRASE [Concomitant]
     Active Substance: SAQUINAVIR MESYLATE
  40. RETROVIR [Concomitant]
     Active Substance: ZIDOVUDINE
  41. TRICOR [Concomitant]
     Active Substance: FENOFIBRATE
  42. PANTOPRAZOLE [Concomitant]
     Active Substance: PANTOPRAZOLE
  43. ZITHROMAX [Concomitant]
     Active Substance: AZITHROMYCIN DIHYDRATE
  44. ALAVERT ALLERGY [Concomitant]
     Active Substance: LORATADINE
  45. CRESTOR [Concomitant]
     Active Substance: ROSUVASTATIN CALCIUM

REACTIONS (20)
  - End stage renal disease [Not Recovered/Not Resolved]
  - Anxiety [Not Recovered/Not Resolved]
  - Anhedonia [Not Recovered/Not Resolved]
  - Renal disorder [Unknown]
  - Pain [Not Recovered/Not Resolved]
  - Depression [Not Recovered/Not Resolved]
  - Chronic kidney disease [Not Recovered/Not Resolved]
  - Renal failure [Not Recovered/Not Resolved]
  - Fatigue [Unknown]
  - Economic problem [Not Recovered/Not Resolved]
  - Renal neoplasm [Unknown]
  - Upper limb fracture [Recovered/Resolved]
  - Quality of life decreased [Not Recovered/Not Resolved]
  - Decreased activity [Not Recovered/Not Resolved]
  - Hyperparathyroidism secondary [Not Recovered/Not Resolved]
  - Bone density decreased [Not Recovered/Not Resolved]
  - Acute kidney injury [Not Recovered/Not Resolved]
  - Emotional distress [Not Recovered/Not Resolved]
  - Renal failure [Not Recovered/Not Resolved]
  - Loss of personal independence in daily activities [Not Recovered/Not Resolved]

NARRATIVE: CASE EVENT DATE: 20051230
